FAERS Safety Report 17766146 (Version 1)
Quarter: 2020Q2

REPORT INFORMATION
  Report Type: Spontaneous
  Country: CA (occurrence: CA)
  Receive Date: 20200511
  Receipt Date: 20200511
  Transmission Date: 20200714
  Serious: Yes (Other)
  Sender: FDA-Public Use
  Company Number: CA-DRREDDYS-USA/CAN/20/0122726

PATIENT
  Sex: Female
  Weight: 3 kg

DRUGS (1)
  1. ZOLEDRONIC ACID. [Suspect]
     Active Substance: ZOLEDRONIC ACID
     Indication: PATHOLOGICAL FRACTURE
     Route: 042

REACTIONS (5)
  - Product use in unapproved indication [Unknown]
  - Foot fracture [Unknown]
  - Off label use [Unknown]
  - Tibia fracture [Unknown]
  - Fibula fracture [Unknown]
